FAERS Safety Report 4436753-6 (Version None)
Quarter: 2004Q3

REPORT INFORMATION
  Report Type: 
  Country: None (occurrence: None)
  Receive Date: 20040726
  Receipt Date: 20040416
  Transmission Date: 20050211
  Serious: No
  Sender: FDA-Public Use
  Company Number: USA040361059

PATIENT
  Age: 72 Year
  Sex: Female
  Weight: 53 kg

DRUGS (4)
  1. FORTEO [Suspect]
     Indication: OSTEOPOROSIS
     Dosage: 20 UG DAY
     Dates: start: 20031219
  2. POTASSIUM [Concomitant]
  3. CARDIZEM [Concomitant]
  4. ZYRTEC [Concomitant]

REACTIONS (4)
  - BONE PAIN [None]
  - GINGIVAL PAIN [None]
  - MUSCLE CRAMP [None]
  - POOR PERIPHERAL CIRCULATION [None]
